FAERS Safety Report 4591150-8 (Version None)
Quarter: 2005Q1

REPORT INFORMATION
  Report Type: 
  Country: None (occurrence: None)
  Receive Date: 20050225
  Receipt Date: 20050214
  Transmission Date: 20050727
  Serious: Yes (Hospitalization, Other)
  Sender: FDA-Public Use
  Company Number: GB-JNJFOC-20050204107

PATIENT
  Sex: Male

DRUGS (2)
  1. RISPERDAL [Suspect]
     Indication: DRUG USE FOR UNKNOWN INDICATION
  2. RISPERDAL CONSTA [Suspect]
     Indication: DRUG USE FOR UNKNOWN INDICATION

REACTIONS (10)
  - CARDIAC DISORDER [None]
  - CONVULSION [None]
  - COUGH [None]
  - DYSKINESIA [None]
  - FORMICATION [None]
  - INSOMNIA [None]
  - LIBIDO INCREASED [None]
  - PENILE PAIN [None]
  - PRURITUS [None]
  - VISUAL DISTURBANCE [None]
